FAERS Safety Report 7112504-1 (Version None)
Quarter: 2010Q4

REPORT INFORMATION
  Report Type: 
  Country: None (occurrence: None)
  Receive Date: 20101119
  Receipt Date: 20101108
  Transmission Date: 20110411
  Serious: Yes (Hospitalization)
  Sender: FDA-Public Use
  Company Number: US-BAYER-201028798NA

PATIENT
  Age: 21 Year
  Sex: Female
  Weight: 69 kg

DRUGS (12)
  1. YAZ [Suspect]
     Indication: CONTRACEPTION
     Route: 048
     Dates: start: 20100301
  2. YASMIN [Suspect]
     Route: 048
     Dates: start: 20040901, end: 20080601
  3. OCELLA [Suspect]
     Route: 048
     Dates: start: 20080701, end: 20100501
  4. NEXIUM [Concomitant]
     Indication: GASTRITIS
  5. ANTIBIOTICS [Concomitant]
     Indication: URINARY TRACT INFECTION
  6. MOTRIN [Concomitant]
  7. ADVIL [Concomitant]
  8. ALLI (ORLISTAT) [Concomitant]
     Dates: end: 20100101
  9. ANCEF [Concomitant]
     Dates: start: 20100315, end: 20100315
  10. PHENERGAN [Concomitant]
     Dates: start: 20100315, end: 20100315
  11. ZOFRAN [Concomitant]
     Dates: start: 20100315, end: 20100315
  12. PERCOCET [Concomitant]
     Dates: start: 20100315

REACTIONS (6)
  - ABDOMINAL PAIN [None]
  - ABDOMINAL PAIN UPPER [None]
  - CHOLECYSTITIS CHRONIC [None]
  - CHOLELITHIASIS [None]
  - INJURY [None]
  - VOMITING [None]
